FAERS Safety Report 16132409 (Version 1)
Quarter: 2019Q2

REPORT INFORMATION
  Report Type: Spontaneous
  Country: US (occurrence: US)
  Receive Date: 20190328
  Receipt Date: 20190328
  Transmission Date: 20190711
  Serious: Yes (Death)
  Sender: FDA-Public Use
  Company Number: None

PATIENT

DRUGS (3)
  1. COLACE [Concomitant]
     Active Substance: DOCUSATE SODIUM
  2. BENZOCAINE. [Concomitant]
     Active Substance: BENZOCAINE
  3. OPDIVO [Suspect]
     Active Substance: NIVOLUMAB
     Indication: GASTROINTESTINAL NEOPLASM
     Dosage: ?          OTHER FREQUENCY:EVERY 28 DAYS;?
     Route: 041

REACTIONS (1)
  - Death [None]
